FAERS Safety Report 5794407-8 (Version None)
Quarter: 2008Q2

REPORT INFORMATION
  Report Type: 
  Country: None (occurrence: None)
  Receive Date: 20080620
  Receipt Date: 20080605
  Transmission Date: 20081010
  Serious: Yes (Hospitalization, Other)
  Sender: FDA-Public Use
  Company Number: AEJPN200800133

PATIENT
  Age: 63 Year
  Sex: Male
  Weight: 62 kg

DRUGS (5)
  1. PLASMANATE [Suspect]
     Indication: HYPOALBUMINAEMIA
     Dosage: 250 ML; IV
     Route: 042
  2. ALBUMIN (HUMAN) [Suspect]
     Indication: HYPOALBUMINAEMIA
     Dosage: 100 ML; IV
     Route: 042
     Dates: start: 20010624, end: 20010626
  3. ALBUMIN (HUMAN) [Suspect]
     Indication: HYPOALBUMINAEMIA
     Dosage: 100 ML; IV
     Route: 042
     Dates: start: 20010724, end: 20010725
  4. ALBUMIN (HUMAN) [Suspect]
     Indication: HYPOALBUMINAEMIA
     Dosage: 100 ML; IV
     Route: 042
     Dates: start: 20010806, end: 20010808
  5. VENOGLOBULIN-I [Suspect]
     Indication: SEPSIS
     Dosage: 500 MG;
     Dates: start: 20010725

REACTIONS (5)
  - ALANINE AMINOTRANSFERASE INCREASED [None]
  - ASPARTATE AMINOTRANSFERASE INCREASED [None]
  - HEPATIC FUNCTION ABNORMAL [None]
  - HEPATITIS B E ANTIGEN POSITIVE [None]
  - HEPATITIS B SURFACE ANTIGEN POSITIVE [None]
